FAERS Safety Report 20807974 (Version 1)
Quarter: 2022Q2

REPORT INFORMATION
  Report Type: Report from Study
  Country: NL (occurrence: NL)
  Receive Date: 20220510
  Receipt Date: 20220510
  Transmission Date: 20220721
  Serious: Yes (Other)
  Sender: FDA-Public Use
  Company Number: NL-GLAXOSMITHKLINE-NL2022GSK073996

PATIENT
  Age: 56 Year
  Sex: Female
  Weight: 72 kg

DRUGS (5)
  1. BELIMUMAB [Suspect]
     Active Substance: BELIMUMAB
     Indication: Systemic lupus erythematosus
     Route: 058
  2. RITUXIMAB [Suspect]
     Active Substance: RITUXIMAB
     Indication: Systemic lupus erythematosus
     Route: 042
  3. METHYLPREDNISOLONE [Concomitant]
     Active Substance: METHYLPREDNISOLONE
     Indication: Systemic lupus erythematosus
     Dosage: UNK, QD (60-5 MG RAL/ IV)
     Route: 048
     Dates: start: 20190911, end: 20191024
  4. CELLCEPT [Concomitant]
     Active Substance: MYCOPHENOLATE MOFETIL
     Indication: Product used for unknown indication
     Dosage: UNK100-750 MG
     Route: 048
     Dates: start: 20190606, end: 20191024
  5. CELLCEPT [Concomitant]
     Active Substance: MYCOPHENOLATE MOFETIL
     Dosage: 500 MG
     Route: 048
     Dates: start: 20190606, end: 20190911

REACTIONS (2)
  - Lupus nephritis [Recovered/Resolved]
  - Condition aggravated [Recovered/Resolved]

NARRATIVE: CASE EVENT DATE: 20190911
